FAERS Safety Report 7961029-X (Version None)
Quarter: 2011Q4

REPORT INFORMATION
  Report Type: 
  Country: None (occurrence: None)
  Receive Date: 20111207
  Receipt Date: 20111125
  Transmission Date: 20120403
  Serious: Yes (Life-Threatening, Hospitalization)
  Sender: FDA-Public Use
  Company Number: JP-EISAI INC-E7389-01772-CLI-JP

PATIENT
  Age: 54 Year
  Sex: Female

DRUGS (4)
  1. EPIRUBICIN HYDROCHLORIDE [Suspect]
     Indication: METASTASES TO LIVER
  2. EPIRUBICIN HYDROCHLORIDE [Suspect]
     Indication: METASTASES TO LUNG
  3. EPIRUBICIN HYDROCHLORIDE [Suspect]
     Indication: BREAST CANCER RECURRENT
     Route: 041
     Dates: start: 20110926, end: 20111114
  4. EPIRUBICIN HYDROCHLORIDE [Suspect]

REACTIONS (1)
  - SEPTIC SHOCK [None]
